FAERS Safety Report 22197324 (Version 4)
Quarter: 2025Q1

REPORT INFORMATION
  Report Type: Spontaneous
  Country: US (occurrence: US)
  Receive Date: 20230411
  Receipt Date: 20250120
  Transmission Date: 20250408
  Serious: Yes (Other)
  Sender: SANOFI AVENTIS
  Company Number: US-SA-SAC20230410000978

PATIENT
  Age: 30 Year
  Sex: Male

DRUGS (1)
  1. DUPIXENT [Suspect]
     Active Substance: DUPILUMAB
     Indication: Dermatitis atopic
     Dosage: 300 MG, QOW
     Route: 058

REACTIONS (6)
  - Lower respiratory tract infection [Unknown]
  - Asthma [Unknown]
  - Pruritus [Unknown]
  - Rash erythematous [Recovered/Resolved]
  - Dermatitis atopic [Unknown]
  - Injection site pain [Unknown]
